FAERS Safety Report 10428917 (Version 3)
Quarter: 2014Q3

REPORT INFORMATION
  Report Type: Spontaneous
  Country: DE (occurrence: DE)
  Receive Date: 20140904
  Receipt Date: 20140923
  Transmission Date: 20150326
  Serious: Yes (Other)
  Sender: FDA-Public Use
  Company Number: DE-UCBSA-095936

PATIENT
  Sex: Female

DRUGS (2)
  1. KEPPRA [Suspect]
     Active Substance: LEVETIRACETAM
     Dosage: 3000 MG PER DAY
     Route: 065
  2. VIMPAT [Suspect]
     Active Substance: LACOSAMIDE
     Route: 065

REACTIONS (3)
  - Premature delivery [Unknown]
  - Exposure via body fluid [Unknown]
  - Pregnancy [Unknown]
